FAERS Safety Report 9366234 (Version 3)
Quarter: 2013Q4

REPORT INFORMATION
  Report Type: Spontaneous
  Country: FR (occurrence: FR)
  Receive Date: 20130625
  Receipt Date: 20131101
  Transmission Date: 20140711
  Serious: Yes (Hospitalization, Other)
  Sender: FDA-Public Use
  Company Number: FR-ELI_LILLY_AND_COMPANY-FR201306005848

PATIENT
  Age: 60 Year
  Sex: Male

DRUGS (17)
  1. ALIMTA [Suspect]
     Indication: LUNG ADENOCARCINOMA
     Dosage: 500 MG/M2, UNKNOWN
     Route: 042
     Dates: start: 20130521
  2. TAZOCILLINE [Suspect]
     Indication: AGRANULOCYTOSIS
     Dosage: 4 G, TID
  3. CISPLATIN [Suspect]
     Indication: LUNG ADENOCARCINOMA
     Dosage: 75 MG/M2, UNK
     Route: 042
     Dates: start: 20130521
  4. JANUMET [Concomitant]
  5. DIAMICRON [Concomitant]
  6. CALCIUM [Concomitant]
  7. ESOMEPRAZOLE [Concomitant]
  8. DOMPERIDONE [Concomitant]
  9. LYRICA [Concomitant]
     Dosage: 50 MG, BID
  10. SPECIAFOLDINE [Concomitant]
  11. OXYCODONE [Concomitant]
     Dosage: 45 MG, BID
  12. FUNGIZONE [Concomitant]
  13. INEXIUM [Concomitant]
     Dosage: 40 MG, QD
  14. ALPRAZOLAM [Concomitant]
     Indication: ANXIETY
     Dosage: 0.5 MG, PRN
  15. DOLIPRANE [Concomitant]
     Dosage: 1 G, TID
  16. ZOPLICONE [Concomitant]
  17. OXYNORM [Concomitant]
     Dosage: 10 MG, UNK

REACTIONS (13)
  - Acidosis hyperchloraemic [Recovering/Resolving]
  - Pyelocaliectasis [Unknown]
  - Agranulocytosis [Recovered/Resolved]
  - Renal failure [Recovered/Resolved]
  - Pancytopenia [Recovered/Resolved]
  - Systemic candida [Unknown]
  - Hypocalcaemia [Recovered/Resolved]
  - Abdominal distension [Unknown]
  - Urinary retention [Unknown]
  - Somnolence [Unknown]
  - Diarrhoea [Unknown]
  - Rash maculo-papular [Unknown]
  - Urine abnormality [Unknown]
